FAERS Safety Report 20305473 (Version 1)
Quarter: 2022Q1

REPORT INFORMATION
  Report Type: Spontaneous
  Country: US (occurrence: US)
  Receive Date: 20220106
  Receipt Date: 20220106
  Transmission Date: 20220423
  Serious: No
  Sender: FDA-Public Use
  Company Number: US-AMNEAL PHARMACEUTICALS-2021-AMRX-01897

PATIENT
  Age: 44 Year
  Sex: Female
  Weight: 87.1 kg

DRUGS (9)
  1. ACTIVELLA [Suspect]
     Active Substance: ESTRADIOL\NORETHINDRONE ACETATE
     Indication: Heavy menstrual bleeding
     Dosage: 1 CAPSULES, 1 /DAY
     Route: 048
     Dates: start: 20200326, end: 20201215
  2. ACTIVELLA [Suspect]
     Active Substance: ESTRADIOL\NORETHINDRONE ACETATE
     Dosage: UNK
     Route: 048
     Dates: start: 20190509, end: 20200326
  3. ELAGOLIX [Suspect]
     Active Substance: ELAGOLIX
     Indication: Heavy menstrual bleeding
     Dosage: 300 MILLIGRAM, AM AND PM DOSE
     Route: 048
     Dates: start: 20200326, end: 20201215
  4. ELAGOLIX [Suspect]
     Active Substance: ELAGOLIX
     Dosage: UNK
     Route: 048
     Dates: start: 20190509, end: 20200326
  5. LEXAPRO [Concomitant]
     Active Substance: ESCITALOPRAM OXALATE
     Indication: Depression
     Dosage: 20 MILLIGRAM, 1 /DAY
     Route: 048
     Dates: start: 2002
  6. LEVOTHYROXINE [Concomitant]
     Active Substance: LEVOTHYROXINE
     Indication: Hypothyroidism
     Dosage: 0.125 MILLIGRAM, 1 /DAY
     Route: 048
     Dates: start: 201104
  7. VITAMIN D NOS [Concomitant]
     Active Substance: VITAMIN D NOS
     Indication: Vitamin D deficiency
     Dosage: 5000 INTERNATIONAL UNIT, 1 /DAY
     Route: 048
     Dates: start: 20190613
  8. IBUPROFEN [Concomitant]
     Active Substance: IBUPROFEN
     Indication: Pain prophylaxis
     Dosage: AS NEEDED
     Route: 048
     Dates: start: 20190617
  9. IRON [Concomitant]
     Active Substance: IRON
     Indication: Anaemia
     Dosage: 325 MILLIGRAM, 1 /DAY
     Route: 048
     Dates: start: 2018

REACTIONS (1)
  - Bone loss [Not Recovered/Not Resolved]

NARRATIVE: CASE EVENT DATE: 20201001
